FAERS Safety Report 15378556 (Version 1)
Quarter: 2018Q3

REPORT INFORMATION
  Report Type: Spontaneous
  Country: US (occurrence: US)
  Receive Date: 20180906
  Receipt Date: 20180906
  Transmission Date: 20181010
  Serious: Yes (Other)
  Sender: FDA-Public Use
  Company Number: None

PATIENT
  Age: 79 Year
  Sex: Female
  Weight: 53.64 kg

DRUGS (18)
  1. PRESERVISION AREDS 2 [Concomitant]
     Active Substance: MINERALS\VITAMINS
  2. HYDROXYZINE [Concomitant]
     Active Substance: HYDROXYZINE HYDROCHLORIDE
     Dates: end: 20180713
  3. VALSARTAN. [Concomitant]
     Active Substance: VALSARTAN
     Dates: end: 20180724
  4. CAPECITABINE. [Suspect]
     Active Substance: CAPECITABINE
     Indication: MIXED HEPATOCELLULAR CHOLANGIOCARCINOMA
     Route: 048
     Dates: start: 20180710, end: 20180906
  5. CALCIUM [Concomitant]
     Active Substance: CALCIUM
  6. LOSARTAN. [Concomitant]
     Active Substance: LOSARTAN
  7. XARELTO [Concomitant]
     Active Substance: RIVAROXABAN
  8. PROCHLORPERAZINE. [Concomitant]
     Active Substance: PROCHLORPERAZINE
  9. ALTEPLASE. [Concomitant]
     Active Substance: ALTEPLASE
     Dates: end: 20180713
  10. ENOXAPARIN [Concomitant]
     Active Substance: ENOXAPARIN
     Dates: end: 20180713
  11. FUROSEMIDE. [Concomitant]
     Active Substance: FUROSEMIDE
  12. AMIODARONE [Concomitant]
     Active Substance: AMIODARONE
  13. FOLIC ACID. [Concomitant]
     Active Substance: FOLIC ACID
  14. ZOFRAN ODT [Concomitant]
     Active Substance: ONDANSETRON HYDROCHLORIDE
  15. METFORMIN [Concomitant]
     Active Substance: METFORMIN HYDROCHLORIDE
  16. IBANDRONATE [Concomitant]
     Active Substance: IBANDRONATE SODIUM
  17. PRILOSEC [Concomitant]
     Active Substance: OMEPRAZOLE MAGNESIUM
  18. FISH OIL?FLAX OIL?BORAGE OIL [Concomitant]

REACTIONS (1)
  - Disease progression [None]

NARRATIVE: CASE EVENT DATE: 20180906
